FAERS Safety Report 9678101 (Version 2)
Quarter: 2013Q4

REPORT INFORMATION
  Report Type: Spontaneous
  Country: US (occurrence: US)
  Receive Date: 20131108
  Receipt Date: 20131108
  Transmission Date: 20140711
  Serious: Yes (Hospitalization)
  Sender: FDA-Public Use
  Company Number: US-PFIZER INC-2013312959

PATIENT
  Age: 49 Year
  Sex: Female
  Weight: 68.93 kg

DRUGS (1)
  1. LYRICA [Suspect]
     Indication: FIBROMYALGIA
     Dosage: 150 MG, 3X/DAY

REACTIONS (4)
  - Gastric disorder [Unknown]
  - Drug prescribing error [Unknown]
  - Fatigue [Unknown]
  - Feeling abnormal [Unknown]
